FAERS Safety Report 4931101-7 (Version None)
Quarter: 2006Q1

REPORT INFORMATION
  Report Type: 
  Country: None (occurrence: None)
  Receive Date: 20060302
  Receipt Date: 20050829
  Transmission Date: 20060701
  Serious: Yes (Hospitalization, Disabling)
  Sender: FDA-Public Use
  Company Number: US-MERCK-0508USA05097

PATIENT
  Age: 56 Year
  Sex: Female
  Weight: 82 kg

DRUGS (1)
  1. VIOXX [Suspect]
     Indication: ARTHRITIS
     Route: 048
     Dates: start: 20010401, end: 20040517

REACTIONS (9)
  - ASTHMA [None]
  - BRONCHITIS [None]
  - CARDIAC DISORDER [None]
  - CHONDROPATHY [None]
  - CORONARY ARTERY THROMBOSIS [None]
  - INTERVERTEBRAL DISC PROTRUSION [None]
  - MYOCARDIAL INFARCTION [None]
  - SPINAL DISORDER [None]
  - UPPER RESPIRATORY TRACT INFECTION [None]
